FAERS Safety Report 4667530-9 (Version None)
Quarter: 2005Q2

REPORT INFORMATION
  Report Type: 
  Country: None (occurrence: None)
  Receive Date: 20050520
  Receipt Date: 20050510
  Transmission Date: 20051028
  Serious: Yes (Other)
  Sender: FDA-Public Use
  Company Number: GB-JNJFOC-20050403388

PATIENT
  Age: 67 Year
  Sex: Female
  Weight: 83.9 kg

DRUGS (7)
  1. TOPIRAMATE [Suspect]
     Dosage: TREATMENT PHASED OUT AS OF MAY 05 DUE TO SEIZURES NOT BEING CONTROLLED.
     Route: 049
  2. PHENYTOIN [Concomitant]
  3. NITRAZEPAM [Concomitant]
     Dosage: 2N
  4. WARFARIN SODIUM [Concomitant]
  5. FUROSEMIDE [Concomitant]
  6. LEVOTHYROXINE SODIUM [Concomitant]
  7. VERAPAMIL [Concomitant]

REACTIONS (2)
  - DRUG INEFFECTIVE [None]
  - HYPERKALAEMIA [None]
